FAERS Safety Report 8393813-5 (Version None)
Quarter: 2012Q2

REPORT INFORMATION
  Report Type: 
  Country: None (occurrence: None)
  Receive Date: 20120530
  Receipt Date: 20120525
  Transmission Date: 20120825
  Serious: No
  Sender: FDA-Public Use
  Company Number: US-PFIZER INC-2012127323

PATIENT
  Sex: Female
  Weight: 84.354 kg

DRUGS (9)
  1. PRAZOSIN [Concomitant]
     Indication: NIGHTMARE
     Dosage: 5 MG, DAILY
     Route: 048
  2. RISPERIDONE [Concomitant]
     Indication: SLEEP APNOEA SYNDROME
     Dosage: 0.25 MG, DAILY
  3. CODEINE SULFATE [Suspect]
     Dosage: UNK
  4. RISPERIDONE [Concomitant]
     Indication: ANXIETY
  5. MORPHINE SULFATE [Suspect]
     Dosage: UNK
  6. OMEPRAZOLE [Concomitant]
     Indication: PHARYNGEAL DISORDER
     Dosage: 40 MG, DAILY
  7. RISPERIDONE [Concomitant]
     Indication: NIGHTMARE
  8. OMEPRAZOLE [Concomitant]
     Indication: DYSPNOEA
  9. HYDROCODONE [Suspect]
     Dosage: UNK

REACTIONS (1)
  - DRUG HYPERSENSITIVITY [None]
